FAERS Safety Report 9681578 (Version 1)
Quarter: 2013Q4

REPORT INFORMATION
  Report Type: Spontaneous
  Country: US (occurrence: US)
  Receive Date: 20131111
  Receipt Date: 20131111
  Transmission Date: 20140711
  Serious: No
  Sender: FDA-Public Use
  Company Number: US-ENDO PHARMACEUTICALS INC.-CLON20120005

PATIENT
  Age: 77 Year
  Sex: Female

DRUGS (3)
  1. CLONIDINE HCL TABLETS 0.1MG [Suspect]
     Indication: BLOOD PRESSURE INCREASED
     Route: 048
     Dates: start: 201205, end: 20120704
  2. CLONIDINE HCL TABLETS 0.1MG [Suspect]
     Route: 048
     Dates: start: 20120705
  3. AMLODIPINE BESYLATE TABLETS 5MG [Suspect]
     Indication: BLOOD PRESSURE INCREASED
     Route: 048
     Dates: start: 2012

REACTIONS (1)
  - Diarrhoea [Not Recovered/Not Resolved]
